FAERS Safety Report 12121259 (Version 2)
Quarter: 2019Q4

REPORT INFORMATION
  Report Type: Spontaneous
  Country: RU (occurrence: RU)
  Receive Date: 20160226
  Receipt Date: 20191021
  Transmission Date: 20200122
  Serious: Yes (Other)
  Sender: FDA-Public Use
  Company Number: RU-TEVA-637141ISR

PATIENT

DRUGS (6)
  1. ETOPOSIDE. [Suspect]
     Active Substance: ETOPOSIDE
     Route: 064
  2. DOXORUBICIN [Suspect]
     Active Substance: DOXORUBICIN
     Route: 064
  3. VINCRISTINE [Suspect]
     Active Substance: VINCRISTINE
     Route: 064
  4. CYCLOPHOSPHAMIDE. [Suspect]
     Active Substance: CYCLOPHOSPHAMIDE
     Route: 064
  5. BLEOMYCIN [Suspect]
     Active Substance: BLEOMYCIN SULFATE
     Route: 064
  6. PREDNISONE. [Suspect]
     Active Substance: PREDNISONE
     Route: 064

REACTIONS (2)
  - Vena cava thrombosis [Unknown]
  - Foetal exposure during pregnancy [Unknown]
